FAERS Safety Report 9011717 (Version 2)
Quarter: 2013Q1

REPORT INFORMATION
  Report Type: Spontaneous
  Country: US (occurrence: US)
  Receive Date: 20130114
  Receipt Date: 20130327
  Transmission Date: 20140127
  Serious: No
  Sender: FDA-Public Use
  Company Number: US-009507513-1301USA003201

PATIENT
  Age: 15 None
  Sex: Female
  Weight: 73.16 kg

DRUGS (4)
  1. SINGULAIR [Suspect]
     Indication: RHINITIS ALLERGIC
     Dosage: 10 MG, QD
     Route: 048
     Dates: start: 2002
  2. SINGULAIR [Suspect]
     Dosage: 10 MG, QD
     Route: 048
     Dates: start: 20120416, end: 201301
  3. RITALIN [Concomitant]
     Dosage: UNK
     Route: 048
     Dates: start: 20111121
  4. NASONEX [Concomitant]
     Dosage: 2 PUFF DAILY
     Route: 055
     Dates: start: 20110707

REACTIONS (3)
  - Mood swings [Not Recovered/Not Resolved]
  - Palpitations [Not Recovered/Not Resolved]
  - Depression [Recovering/Resolving]
